FAERS Safety Report 17931226 (Version 1)
Quarter: 2020Q2

REPORT INFORMATION
  Report Type: Spontaneous
  Country: CA (occurrence: CA)
  Receive Date: 20200623
  Receipt Date: 20200623
  Transmission Date: 20200714
  Serious: Yes (Other)
  Sender: FDA-Public Use
  Company Number: CA-TEVA-2020-CA-1790964

PATIENT
  Age: 27 Year
  Sex: Male
  Weight: 58.11 kg

DRUGS (6)
  1. TEVA-CLOBAZAM 10MG [Suspect]
     Active Substance: CLOBAZAM
     Indication: SEIZURE
     Dosage: 15 MILLIGRAM DAILY;
     Route: 048
  2. LAMOTRIGINE. [Concomitant]
     Active Substance: LAMOTRIGINE
  3. BANZEL [Concomitant]
     Active Substance: RUFINAMIDE
  4. TOPIRAMATE. [Concomitant]
     Active Substance: TOPIRAMATE
  5. VIMPAT [Concomitant]
     Active Substance: LACOSAMIDE
  6. TEVA-CLOBAZAM 10MG [Suspect]
     Active Substance: CLOBAZAM
     Dosage: 40 MILLIGRAM DAILY;
     Route: 048

REACTIONS (4)
  - Tonic convulsion [Unknown]
  - Seizure [Unknown]
  - Product substitution issue [Unknown]
  - Petit mal epilepsy [Unknown]
